FAERS Safety Report 25685945 (Version 1)
Quarter: 2025Q3

REPORT INFORMATION
  Report Type: Spontaneous
  Country: US (occurrence: None)
  Receive Date: 20250815
  Receipt Date: 20250815
  Transmission Date: 20251021
  Serious: Yes (Hospitalization)
  Sender: FDA-CTU
  Company Number: None

PATIENT
  Sex: Female
  Weight: 63 kg

DRUGS (12)
  1. DUPIXENT [Suspect]
     Active Substance: DUPILUMAB
     Route: 058
     Dates: start: 20250110
  2. PREDNISONE [Suspect]
     Active Substance: PREDNISONE
  3. B12 CHERRY LIQUID 1000MCG/15ML [Concomitant]
  4. CALCIUM 600MG W/D [Concomitant]
  5. POTASSIUM 99MG [Concomitant]
  6. VITAMIN D 1,000IU H/PTNCY CAPSULES [Concomitant]
  7. Diltiazem CD 240mg [Concomitant]
  8. ALENDRONATE SODIUM [Concomitant]
     Active Substance: ALENDRONATE SODIUM
  9. ALPRAZOLAM [Concomitant]
     Active Substance: ALPRAZOLAM
  10. Trelegy Ellipta 200-62.Smg [Concomitant]
  11. BUPROPION [Concomitant]
     Active Substance: BUPROPION
  12. SERTRALINE [Concomitant]
     Active Substance: SERTRALINE HYDROCHLORIDE

REACTIONS (2)
  - Hospitalisation [None]
  - Adverse event [None]
